FAERS Safety Report 6627734-2 (Version None)
Quarter: 2010Q1

REPORT INFORMATION
  Report Type: 
  Country: None (occurrence: None)
  Receive Date: 20100311
  Receipt Date: 20100301
  Transmission Date: 20100710
  Serious: Yes (Hospitalization, Other)
  Sender: FDA-Public Use
  Company Number: PHHY2010BR11776

PATIENT
  Age: 16 Year
  Sex: Female

DRUGS (1)
  1. RITALIN [Suspect]
     Dosage: 40 TABLETS, UNK
     Route: 048
     Dates: start: 20100301

REACTIONS (5)
  - BLOOD PRESSURE INCREASED [None]
  - GASTRIC LAVAGE [None]
  - HEART RATE INCREASED [None]
  - SUICIDE ATTEMPT [None]
  - TREMOR [None]
